FAERS Safety Report 25488689 (Version 1)
Quarter: 2025Q2

REPORT INFORMATION
  Report Type: Report from Study
  Country: JP (occurrence: JP)
  Receive Date: 20250627
  Receipt Date: 20250627
  Transmission Date: 20250717
  Serious: Yes (Death, Other)
  Sender: JOHNSON AND JOHNSON
  Company Number: JP-JNJFOC-20250371913

PATIENT

DRUGS (2)
  1. ZYTIGA [Suspect]
     Active Substance: ABIRATERONE ACETATE
     Indication: Prostate cancer metastatic
     Route: 048
  2. OLAPARIB [Suspect]
     Active Substance: OLAPARIB
     Indication: Prostate cancer metastatic
     Route: 065

REACTIONS (26)
  - Adverse event [Fatal]
  - Hypertension [Unknown]
  - Anaemia [Unknown]
  - Cardiac failure [Unknown]
  - Fatigue [Unknown]
  - Diarrhoea [Unknown]
  - Lymphocyte count decreased [Unknown]
  - Neutropenia [Unknown]
  - Decreased appetite [Unknown]
  - Vomiting [Unknown]
  - Cataract [Unknown]
  - Embolism arterial [Unknown]
  - Embolism venous [Unknown]
  - Arterial thrombosis [Unknown]
  - Venous thrombosis [Unknown]
  - Asthenia [Unknown]
  - Nausea [Unknown]
  - Constipation [Unknown]
  - Malaise [Unknown]
  - Oedema peripheral [Unknown]
  - Back pain [Unknown]
  - Pyrexia [Unknown]
  - Myocardial infarction [Unknown]
  - Ischaemic stroke [Unknown]
  - Cardiac failure congestive [Unknown]
  - Myelodysplastic syndrome [Unknown]
